FAERS Safety Report 16817235 (Version 1)
Quarter: 2019Q3

REPORT INFORMATION
  Report Type: Spontaneous
  Country: NL (occurrence: NL)
  Receive Date: 20190917
  Receipt Date: 20190917
  Transmission Date: 20191005
  Serious: Yes (Other)
  Sender: FDA-Public Use
  Company Number: NL-TEVA-2019-NL-1106354

PATIENT
  Age: 6 Year
  Sex: Male
  Weight: 21.2 kg

DRUGS (13)
  1. AZITROMYCINE (AZITHROMYCIN) [Suspect]
     Active Substance: AZITHROMYCIN
     Indication: MYCOBACTERIUM ABSCESSUS INFECTION
     Dosage: 1DD 250MG
     Dates: start: 20190328, end: 20190721
  2. OMEPRAZOL TABLET, 20 MG [Concomitant]
     Dosage: 1XDD
  3. SALBUTAMOL AEROSOL 100MCG/DOSIS [Concomitant]
     Dosage: 100 MCG, ZN 4XDD
  4. TIGECYCLINE. [Concomitant]
     Active Substance: TIGECYCLINE
     Dosage: 2DD 26 MG
     Dates: start: 20190328
  5. IMIPENEM/CILASTATINE (500/500 MG IN 0.9% NACL INFUUS) [Concomitant]
     Indication: MYCOBACTERIUM ABSCESSUS INFECTION
     Dosage: 2DD 750/750  MG (VOORHEEN 3DD 450/450 MG)
     Dates: start: 20190328, end: 20190717
  6. APREPITANT CAPSULE, 80 MG [Concomitant]
     Dosage: 1X DD
  7. NUTRINI CREAMY FRUIT MULTI FIBRE - DIVERSE SMAKEN [Concomitant]
     Dosage: 3XDD
  8. FRESUBIN DRINK JUCY - DIVERSE SMAKEN [Concomitant]
     Dosage: 1XDD
  9. FANTOMALT [Concomitant]
     Dosage: 50 GRAM, 1XDD
  10. CLOFAZIMINE CAPSULE (IMPORT) [Concomitant]
     Dosage: 50 MG, 1XDD
  11. GRANISETRON TABLET, 1 MG [Concomitant]
     Dosage: 2XDD
  12. SALMETEROL/FLUTICASON AEROSOL 25/250MCG/DOSIS [Concomitant]
     Dosage: 1 DOSE, 2XDD
  13. MOMETASON NEUSSPRAY 50MCG/DODIS [Concomitant]
     Dosage: 1 DOSE, 1XDD

REACTIONS (1)
  - Deafness neurosensory [Recovering/Resolving]

NARRATIVE: CASE EVENT DATE: 20190717
